FAERS Safety Report 8153297-9 (Version None)
Quarter: 2012Q1

REPORT INFORMATION
  Report Type: 
  Country: None (occurrence: None)
  Receive Date: 20120221
  Receipt Date: 20120209
  Transmission Date: 20120608
  Serious: Yes (Hospitalization, Other)
  Sender: FDA-Public Use
  Company Number: US-ELI_LILLY_AND_COMPANY-US201112007297

PATIENT
  Sex: Male
  Weight: 80.272 kg

DRUGS (4)
  1. ZYPREXA RELPREVV [Suspect]
     Indication: BIPOLAR I DISORDER
     Dosage: 405 MG, MONTHLY (1/M)
     Route: 030
     Dates: start: 20110921
  2. COGENTIN [Concomitant]
     Dosage: 2 MG, QD
  3. PROTONIX [Concomitant]
     Dosage: 40 MG, QD
  4. SEROQUEL XR [Concomitant]
     Dosage: 150 MG, OTHER
     Route: 048

REACTIONS (5)
  - DELUSION [None]
  - PARANOIA [None]
  - MANIA [None]
  - AGGRESSION [None]
  - AGITATION [None]
